FAERS Safety Report 4924933-2 (Version None)
Quarter: 2006Q1

REPORT INFORMATION
  Report Type: 
  Country: None (occurrence: None)
  Receive Date: 20060222
  Receipt Date: 20060206
  Transmission Date: 20060701
  Serious: No
  Sender: FDA-Public Use
  Company Number: 2006-138446-NL

PATIENT
  Age: 50 Year
  Sex: Male

DRUGS (7)
  1. ROCURONIUM BROMIDE [Suspect]
     Indication: ANAESTHESIA
     Dosage: 40 MG ONCE/10 MG ONCE, INTRAVENOUS NOS/INTRAVENOUS DRIP
     Route: 041
     Dates: start: 20051125, end: 20051125
  2. PROPOFOL [Concomitant]
  3. ALFENTANIL [Concomitant]
  4. SEVOFLURANE [Concomitant]
  5. OMEPRAZOLE [Concomitant]
  6. DEXAMETHASONE [Concomitant]
  7. DICLOFENAC EPOLAMINE PATCH [Concomitant]

REACTIONS (1)
  - DRUG INEFFECTIVE [None]
